FAERS Safety Report 9344392 (Version 1)
Quarter: 2013Q2

REPORT INFORMATION
  Report Type: Spontaneous
  Country: SE (occurrence: SE)
  Receive Date: 20130612
  Receipt Date: 20130612
  Transmission Date: 20140414
  Serious: Yes (Hospitalization)
  Sender: FDA-Public Use
  Company Number: SE-JNJFOC-20130603116

PATIENT
  Age: 63 Year
  Sex: Male

DRUGS (2)
  1. IPREN [Suspect]
     Indication: ARTHRALGIA
     Route: 065
     Dates: start: 2012
  2. IPREN [Suspect]
     Indication: NECK PAIN
     Route: 065
     Dates: start: 2012

REACTIONS (10)
  - Decreased appetite [Unknown]
  - C-reactive protein increased [Unknown]
  - Cholestasis [Unknown]
  - Blood alkaline phosphatase increased [Unknown]
  - Liver disorder [Unknown]
  - Jaundice [Unknown]
  - Amylase increased [Unknown]
  - Lipomatosis [Unknown]
  - Pancreatitis [None]
  - Ultrasound scan abnormal [None]
